FAERS Safety Report 11702333 (Version 1)
Quarter: 2015Q4

REPORT INFORMATION
  Report Type: Spontaneous
  Country: IT (occurrence: IT)
  Receive Date: 20151105
  Receipt Date: 20151105
  Transmission Date: 20160304
  Serious: Yes (Hospitalization, Other)
  Sender: FDA-Public Use
  Company Number: IT-DEP_02826_2015

PATIENT
  Age: 26 Year
  Sex: Female

DRUGS (2)
  1. PALEXIA [Suspect]
     Active Substance: TAPENTADOL HYDROCHLORIDE
     Indication: DRUG ABUSE
     Dosage: 30 DF, ONCE
     Route: 048
     Dates: start: 20150218, end: 20150218
  2. PATROL [Concomitant]
     Active Substance: ACETAMINOPHEN\TRAMADOL HYDROCHLORIDE
     Dosage: DF

REACTIONS (4)
  - Bradyphrenia [Recovered/Resolved]
  - Intentional overdose [Recovered/Resolved]
  - Bradykinesia [Recovered/Resolved]
  - Drug abuse [Recovered/Resolved]

NARRATIVE: CASE EVENT DATE: 20150218
